FAERS Safety Report 10143756 (Version 2)
Quarter: 2014Q2

REPORT INFORMATION
  Report Type: Spontaneous
  Country: JP (occurrence: JP)
  Receive Date: 20140430
  Receipt Date: 20140512
  Transmission Date: 20141212
  Serious: No
  Sender: FDA-Public Use
  Company Number: JP-ABBVIE-14P-087-1228524-00

PATIENT
  Age: 65 Year
  Sex: Male
  Weight: 66 kg

DRUGS (3)
  1. HUMIRA [Suspect]
     Indication: PSORIASIS
     Route: 058
     Dates: start: 20130913, end: 20140207
  2. LOXOPROFEN [Concomitant]
     Indication: PAIN
     Route: 048
     Dates: start: 20130225
  3. REBAMIPIDE [Concomitant]
     Indication: GASTRITIS
     Route: 048

REACTIONS (1)
  - Antinuclear antibody increased [Unknown]
